FAERS Safety Report 16650219 (Version 2)
Quarter: 2019Q3

REPORT INFORMATION
  Report Type: Report from Study
  Country: FR (occurrence: FR)
  Receive Date: 20190731
  Receipt Date: 20190805
  Transmission Date: 20191004
  Serious: Yes (Hospitalization)
  Sender: FDA-Public Use
  Company Number: FR-BRISTOL-MYERS SQUIBB COMPANY-BMS-2019-074016

PATIENT
  Age: 74 Year
  Sex: Male
  Weight: 91.5 kg

DRUGS (1)
  1. NIVOLUMAB [Suspect]
     Active Substance: NIVOLUMAB
     Indication: METASTATIC RENAL CELL CARCINOMA
     Dosage: 285 MILLIGRAM
     Route: 042
     Dates: start: 20160311, end: 20190531

REACTIONS (1)
  - Humerus fracture [Recovered/Resolved with Sequelae]

NARRATIVE: CASE EVENT DATE: 20190614
